FAERS Safety Report 8406599-2 (Version None)
Quarter: 2012Q2

REPORT INFORMATION
  Report Type: 
  Country: None (occurrence: None)
  Receive Date: 20120529
  Receipt Date: 20070604
  Transmission Date: 20120825
  Serious: Yes (Life-Threatening, Hospitalization)
  Sender: FDA-Public Use
  Company Number: 02100-JPN-07-0237

PATIENT
  Age: 74 Year
  Sex: Male
  Weight: 68.5 kg

DRUGS (8)
  1. VUVELA N (TOCOPHEROL NICOTINATE) [Concomitant]
  2. PLETAL [Suspect]
     Indication: CAROTID ARTERY STENOSIS
     Dosage: 100 MG, BID, ORAL
     Route: 048
     Dates: start: 20060529, end: 20070501
  3. DEPAS (ETIZOLAM) [Concomitant]
  4. FAMOTIDINE [Concomitant]
  5. ALLOPURINOL [Concomitant]
  6. IOPAMIDOL-370 [Suspect]
     Indication: ANGIOGRAM
     Dosage: 10 ML,, IV DRIP
     Route: 041
     Dates: start: 20070429, end: 20070429
  7. AM (SODIUM BICARBONATE, CALCIUM CARBONAGE, MAGNESIUM CARBONATE, ALUMIN [Concomitant]
  8. ASPIRIN [Concomitant]

REACTIONS (4)
  - TACHYCARDIA PAROXYSMAL [None]
  - VERTEBRAL ARTERY STENOSIS [None]
  - CAROTID ARTERY STENOSIS [None]
  - VENTRICULAR TACHYCARDIA [None]
